FAERS Safety Report 16775740 (Version 1)
Quarter: 2019Q3

REPORT INFORMATION
  Report Type: Spontaneous
  Country: US (occurrence: US)
  Receive Date: 20190905
  Receipt Date: 20190905
  Transmission Date: 20191005
  Serious: Yes (Other)
  Sender: FDA-Public Use
  Company Number: US-ABBVIE-19K-163-2910775-00

PATIENT
  Age: 73 Year
  Sex: Female
  Weight: 70.37 kg

DRUGS (8)
  1. FENTANYL. [Suspect]
     Active Substance: FENTANYL
     Indication: PAIN
     Route: 065
  2. DULOXETINE HCL [Suspect]
     Active Substance: DULOXETINE HYDROCHLORIDE
     Indication: DEPRESSION
  3. LOSARTAN. [Suspect]
     Active Substance: LOSARTAN
     Indication: BLOOD PRESSURE MEASUREMENT
     Dosage: 100/25 TABS-TAKING 1/2 TAB?DISPENSED IN PHARMACY VIAL.
     Route: 065
  4. OXYCONTIN [Suspect]
     Active Substance: OXYCODONE HYDROCHLORIDE
     Indication: PAIN
     Route: 065
  5. XELJANZ XR [Suspect]
     Active Substance: TOFACITINIB CITRATE
     Indication: RHEUMATOID ARTHRITIS
     Route: 065
     Dates: end: 201908
  6. VICODIN [Suspect]
     Active Substance: ACETAMINOPHEN\HYDROCODONE BITARTRATE
     Indication: PAIN
     Route: 048
  7. ENBREL [Suspect]
     Active Substance: ETANERCEPT
     Indication: PAIN
     Route: 065
  8. DULOXETINE HCL [Suspect]
     Active Substance: DULOXETINE HYDROCHLORIDE
     Indication: PAIN
     Dosage: 60MG CPEP.
     Route: 065
     Dates: start: 2014

REACTIONS (19)
  - Concussion [Unknown]
  - Dizziness [Unknown]
  - Depression [Recovered/Resolved]
  - Presyncope [Unknown]
  - Inappropriate schedule of product administration [Unknown]
  - Fall [Unknown]
  - Facial bones fracture [Unknown]
  - Dysstasia [Unknown]
  - Weight decreased [Unknown]
  - Loss of consciousness [Unknown]
  - Asthma [Unknown]
  - Blood pressure decreased [Unknown]
  - Pain [Recovered/Resolved]
  - Blood pressure decreased [Recovered/Resolved]
  - Nasopharyngitis [Unknown]
  - Head injury [Unknown]
  - Fall [Unknown]
  - Eye contusion [Unknown]
  - Hypophagia [Unknown]

NARRATIVE: CASE EVENT DATE: 201809
